FAERS Safety Report 9167346 (Version 1)
Quarter: 2013Q1

REPORT INFORMATION
  Report Type: Spontaneous
  Country: TR (occurrence: None)
  Receive Date: 20130304
  Receipt Date: 20130304
  Transmission Date: 20140127
  Serious: Yes (Other)
  Sender: FDA-Public Use
  Company Number: 7195414

PATIENT
  Age: 49 Year
  Sex: Female

DRUGS (2)
  1. LEVOTHYROXINE [Suspect]
     Indication: AUTOIMMUNE THYROIDITIS
  2. GLIMEPIRIDE (GLIMEPIRIDE) [Suspect]
     Indication: TYPE 2 DIABETES MELLITUS

REACTIONS (4)
  - Follicular thyroid cancer [None]
  - Papillary thyroid cancer [None]
  - Autoimmune thyroiditis [None]
  - Dysphagia [None]
